FAERS Safety Report 13840229 (Version 2)
Quarter: 2017Q3

REPORT INFORMATION
  Report Type: Spontaneous
  Country: DK (occurrence: DK)
  Receive Date: 20170807
  Receipt Date: 20170815
  Transmission Date: 20171127
  Serious: Yes (Death, Other)
  Sender: FDA-Public Use
  Company Number: DK-PFIZER INC-2017336823

PATIENT
  Age: 36 Year
  Sex: Female

DRUGS (6)
  1. BROMOCRIPTINE [Suspect]
     Active Substance: BROMOCRIPTINE
     Indication: PROLACTIN-PRODUCING PITUITARY TUMOUR
  2. CABERGOLINE. [Suspect]
     Active Substance: CABERGOLINE
     Indication: PROLACTIN-PRODUCING PITUITARY TUMOUR
  3. CABERGOLINE. [Suspect]
     Active Substance: CABERGOLINE
     Indication: GALACTORRHOEA
  4. BROMOCRIPTINE [Suspect]
     Active Substance: BROMOCRIPTINE
     Indication: GALACTORRHOEA
  5. CABERGOLINE. [Suspect]
     Active Substance: CABERGOLINE
     Indication: HYPERPROLACTINAEMIA
     Dosage: 0.5 MG, WEEKLY (IN TOTAL APPROXIMATELY 160 MG)
  6. BROMOCRIPTINE [Suspect]
     Active Substance: BROMOCRIPTINE
     Indication: HYPERPROLACTINAEMIA
     Dosage: 2.5 MG, DAILY (IN TOTAL APPROXIMATELY 900 MG)

REACTIONS (3)
  - Pulmonary hypertension [Not Recovered/Not Resolved]
  - Arterial haemorrhage [Fatal]
  - Mediastinal fibrosis [Not Recovered/Not Resolved]
